FAERS Safety Report 8053347-4 (Version None)
Quarter: 2012Q1

REPORT INFORMATION
  Report Type: 
  Country: None (occurrence: None)
  Receive Date: 20120118
  Receipt Date: 20120113
  Transmission Date: 20120608
  Serious: No
  Sender: FDA-Public Use
  Company Number: US-B.I. PHARMACEUTICALS,INC./RIDGEFIELD-2011-BP-23424BP

PATIENT
  Sex: Male

DRUGS (6)
  1. LISINOPRIL [Concomitant]
     Indication: BLOOD PRESSURE
  2. STALEVO 100 [Concomitant]
  3. SIMVASTATIN [Concomitant]
  4. PRAMIPEXOLE DIHYCHLLORIDE [Suspect]
     Indication: PARKINSON'S DISEASE
     Dosage: 1.5 MG
     Route: 048
     Dates: start: 20100301
  5. METFORMIN HCL [Concomitant]
  6. MIRAPEX [Suspect]
     Indication: PARKINSON'S DISEASE
     Dates: start: 20040101, end: 20100301

REACTIONS (3)
  - PATHOLOGICAL GAMBLING [None]
  - PAIN [None]
  - COMPULSIVE SHOPPING [None]
